FAERS Safety Report 4327876-0 (Version None)
Quarter: 2004Q1

REPORT INFORMATION
  Report Type: 
  Country: None (occurrence: None)
  Receive Date: 20040325
  Receipt Date: 20040315
  Transmission Date: 20041129
  Serious: Yes (Hospitalization, Disabling)
  Sender: FDA-Public Use
  Company Number: ZONI001363

PATIENT
  Age: 64 Year
  Sex: Female

DRUGS (5)
  1. EXCEGRAN (ZONISAMIDE) [Suspect]
     Indication: EPILEPSY
     Dosage: 250 MG DAILY
     Dates: end: 20040106
  2. TEGRETOL [Concomitant]
  3. BLOPRESS (CANDESARTAN CILEXETIL) [Concomitant]
  4. URSO [Concomitant]
  5. TETUCUR (FERROPOLIMALER) [Concomitant]

REACTIONS (2)
  - ANAEMIA [None]
  - HEPATIC FUNCTION ABNORMAL [None]
